FAERS Safety Report 11593537 (Version 2)
Quarter: 2015Q4

REPORT INFORMATION
  Report Type: Spontaneous
  Country: US (occurrence: US)
  Receive Date: 20151005
  Receipt Date: 20151009
  Transmission Date: 20160304
  Serious: Yes (Death, Other)
  Sender: FDA-Public Use
  Company Number: US-BAXTER-2015BAX053786

PATIENT
  Age: 63 Year
  Sex: Male

DRUGS (3)
  1. DEXAMETHASONE. [Suspect]
     Active Substance: DEXAMETHASONE
     Indication: SECONDARY HYPERTHYROIDISM
     Dosage: 6 WEEKS PRIOR TO CURRENT ADMISSION, GRADUALLY TAPERED
     Route: 065
  2. DEXAMETHASONE. [Suspect]
     Active Substance: DEXAMETHASONE
     Dosage: DURING ADMISSION
     Route: 065
  3. NEXTERONE [Suspect]
     Active Substance: AMIODARONE HYDROCHLORIDE
     Indication: CARDIOVERSION
     Route: 065

REACTIONS (6)
  - Acute kidney injury [Unknown]
  - Secondary hyperthyroidism [Unknown]
  - Condition aggravated [Unknown]
  - Hypothyroidism [Unknown]
  - Cardio-respiratory arrest [Fatal]
  - Sepsis [Unknown]
